FAERS Safety Report 20013486 (Version 1)
Quarter: 2021Q4

REPORT INFORMATION
  Report Type: Report from Study
  Country: GB (occurrence: GB)
  Receive Date: 20211029
  Receipt Date: 20211029
  Transmission Date: 20220303
  Serious: Yes (Hospitalization, Other)
  Sender: FDA-Public Use
  Company Number: GB-NOVARTISPH-NVSC2020GB197934

PATIENT
  Age: 72 Year
  Sex: Female

DRUGS (9)
  1. KISQALI [Suspect]
     Active Substance: RIBOCICLIB
     Indication: Breast cancer
     Dosage: 600 (UNITS NOT SPECIFIED)
     Route: 048
     Dates: start: 20181005, end: 20181008
  2. KISQALI [Suspect]
     Active Substance: RIBOCICLIB
     Dosage: 600 (UNTIS NOT SPECIFIED)
     Route: 048
     Dates: start: 20191218, end: 20200115
  3. KISQALI [Suspect]
     Active Substance: RIBOCICLIB
     Dosage: 600 (UNITS NOT SPECIFIED)
     Route: 048
     Dates: start: 20200123, end: 20200219
  4. KISQALI [Suspect]
     Active Substance: RIBOCICLIB
     Dosage: 400 (UNITS NOT SPECIFIED)
     Route: 048
     Dates: start: 20200227, end: 20200325
  5. KISQALI [Suspect]
     Active Substance: RIBOCICLIB
     Dosage: 400 (UNITS NOT SPECIFIED)
     Route: 048
     Dates: start: 20200403, end: 20200430
  6. KISQALI [Suspect]
     Active Substance: RIBOCICLIB
     Dosage: UNK
     Route: 048
     Dates: start: 20210501
  7. OMEPRAZOLE [Concomitant]
     Active Substance: OMEPRAZOLE
     Indication: Hiatus hernia
     Dosage: UNK
     Route: 065
     Dates: start: 2009
  8. COD LIVER OIL [Concomitant]
     Active Substance: COD LIVER OIL
     Indication: Supplementation therapy
     Dosage: UNK
     Route: 065
     Dates: start: 2014
  9. VITAMIN D [Concomitant]
     Active Substance: VITAMIN D NOS
     Indication: Nutritional supplement allergy
     Dosage: UNK
     Route: 065
     Dates: start: 2014

REACTIONS (34)
  - Blood bilirubin increased [Recovered/Resolved]
  - Abdominal pain [Recovered/Resolved]
  - Alanine aminotransferase increased [Recovered/Resolved]
  - Neutropenia [Recovered/Resolved]
  - Lethargy [Unknown]
  - Axillary pain [Not Recovered/Not Resolved]
  - Pain in extremity [Recovering/Resolving]
  - Hot flush [Recovered/Resolved]
  - Hot flush [Recovered/Resolved]
  - Back pain [Recovered/Resolved]
  - Back pain [Recovering/Resolving]
  - Nausea [Recovered/Resolved]
  - Neutrophil count decreased [Recovered/Resolved]
  - Constipation [Recovered/Resolved]
  - Constipation [Recovered/Resolved]
  - Stomatitis [Recovered/Resolved]
  - Fatigue [Not Recovered/Not Resolved]
  - Neutrophil count decreased [Recovered/Resolved]
  - Alanine aminotransferase increased [Recovered/Resolved]
  - Alanine aminotransferase increased [Recovered/Resolved]
  - Alanine aminotransferase increased [Recovered/Resolved]
  - Headache [Recovered/Resolved]
  - Cough [Recovered/Resolved]
  - Dyspnoea [Recovered/Resolved]
  - Rash maculo-papular [Recovered/Resolved]
  - Neutrophil count decreased [Recovered/Resolved]
  - Nausea [Not Recovered/Not Resolved]
  - Neutrophil count decreased [Not Recovered/Not Resolved]
  - Rash [Recovered/Resolved]
  - Blood bilirubin increased [Recovering/Resolving]
  - Hypoalbuminaemia [Not Recovered/Not Resolved]
  - Abdominal pain [Recovered/Resolved]
  - Muscular weakness [Not Recovered/Not Resolved]
  - White blood cell count decreased [Recovered/Resolved]

NARRATIVE: CASE EVENT DATE: 20191218
